FAERS Safety Report 18042956 (Version 1)
Quarter: 2020Q3

REPORT INFORMATION
  Report Type: Spontaneous
  Country: US (occurrence: US)
  Receive Date: 20200717
  Receipt Date: 20200717
  Transmission Date: 20201103
  Serious: No
  Sender: FDA-Public Use
  Company Number: None

PATIENT
  Age: 35 Year
  Sex: Male

DRUGS (1)
  1. PHYSICIANS GROUP HAND SANITIZER [Suspect]
     Active Substance: ALCOHOL
     Indication: ANTIBIOTIC PROPHYLAXIS
     Dosage: ?          QUANTITY:1 SPRAY;?
     Route: 061
     Dates: start: 20200710, end: 20200717

REACTIONS (1)
  - Skin reaction [None]

NARRATIVE: CASE EVENT DATE: 20200717
